FAERS Safety Report 6046672-X (Version None)
Quarter: 2009Q1

REPORT INFORMATION
  Report Type: 
  Country: None (occurrence: None)
  Receive Date: 20090122
  Receipt Date: 20090114
  Transmission Date: 20090719
  Serious: Yes (Hospitalization, Other)
  Sender: FDA-Public Use
  Company Number: AU-AVENTIS-200910551GDDC

PATIENT
  Age: 85 Year
  Sex: Male

DRUGS (1)
  1. ARAVA [Suspect]
     Route: 048
     Dates: start: 20040412, end: 20081201

REACTIONS (4)
  - CYST [None]
  - MENTAL STATUS CHANGES [None]
  - WOUND DEHISCENCE [None]
  - WOUND INFECTION [None]
